FAERS Safety Report 5262696-4 (Version None)
Quarter: 2007Q1

REPORT INFORMATION
  Report Type: 
  Country: None (occurrence: None)
  Receive Date: 20070312
  Receipt Date: 20070301
  Transmission Date: 20070707
  Serious: Yes (Other)
  Sender: FDA-Public Use
  Company Number: JP-MERCK-0702USA04129

PATIENT
  Age: 76 Year
  Sex: Male

DRUGS (18)
  1. AMLODIN [Concomitant]
     Route: 048
     Dates: start: 20030908
  2. METOPROLOL TARTRATE [Concomitant]
     Route: 048
     Dates: start: 20061016
  3. CIBENOL [Concomitant]
     Route: 048
     Dates: start: 20010715
  4. TICLOPIDINE HYDROCHLORIDE [Concomitant]
     Route: 048
     Dates: start: 20010715
  5. EPADEL [Concomitant]
     Indication: ANTIPLATELET THERAPY
     Route: 048
     Dates: start: 20050418
  6. COZAAR [Suspect]
     Indication: PROTEINURIA
     Route: 048
     Dates: start: 20061211, end: 20061220
  7. COZAAR [Suspect]
     Route: 048
     Dates: start: 20070205, end: 20070208
  8. COZAAR [Suspect]
     Route: 048
     Dates: start: 20010715, end: 20030907
  9. COZAAR [Suspect]
     Route: 048
     Dates: start: 20030908, end: 20061015
  10. COZAAR [Suspect]
     Route: 048
     Dates: start: 20061016, end: 20061210
  11. COZAAR [Suspect]
     Indication: HYPERTENSION
     Route: 048
     Dates: start: 20061211, end: 20061220
  12. COZAAR [Suspect]
     Route: 048
     Dates: start: 20070205, end: 20070208
  13. COZAAR [Suspect]
     Route: 048
     Dates: start: 20010715, end: 20030907
  14. COZAAR [Suspect]
     Route: 048
     Dates: start: 20030908, end: 20061015
  15. COZAAR [Suspect]
     Route: 048
     Dates: start: 20061016, end: 20061210
  16. ASPIRIN [Concomitant]
     Route: 048
     Dates: start: 20010715
  17. VASOTEC [Concomitant]
     Route: 048
     Dates: start: 20010715
  18. SALOBEL [Concomitant]
     Route: 048
     Dates: start: 20010715

REACTIONS (2)
  - MUSCULOSKELETAL PAIN [None]
  - PAIN IN EXTREMITY [None]
